FAERS Safety Report 9788793 (Version 1)
Quarter: 2013Q4

REPORT INFORMATION
  Report Type: Spontaneous
  Country: JP (occurrence: JP)
  Receive Date: 20131230
  Receipt Date: 20131230
  Transmission Date: 20140711
  Serious: Yes (Other)
  Sender: FDA-Public Use
  Company Number: JP-GLAXOSMITHKLINE-B0950105A

PATIENT
  Age: 73 Year
  Sex: Male

DRUGS (13)
  1. ARZERRA [Suspect]
     Indication: CHRONIC LYMPHOCYTIC LEUKAEMIA
     Dosage: 300MG PER DAY
     Route: 042
     Dates: start: 20131121, end: 20131121
  2. ARZERRA [Suspect]
     Indication: CHRONIC LYMPHOCYTIC LEUKAEMIA
     Dosage: 2000MG PER DAY
     Route: 042
     Dates: start: 20131128, end: 20131128
  3. ARZERRA [Suspect]
     Indication: CHRONIC LYMPHOCYTIC LEUKAEMIA
     Dosage: 2000MG PER DAY
     Route: 042
     Dates: start: 20131205, end: 20131205
  4. POLARAMINE [Suspect]
     Indication: ALLERGY PROPHYLAXIS
     Dosage: 2MG TWICE PER DAY
     Route: 048
     Dates: start: 20131121, end: 20131121
  5. POLARAMINE [Suspect]
     Indication: ALLERGY PROPHYLAXIS
     Dosage: 2MG TWICE PER DAY
     Route: 048
     Dates: start: 20131128, end: 20131128
  6. POLARAMINE [Suspect]
     Indication: ALLERGY PROPHYLAXIS
     Dosage: 2MG TWICE PER DAY
     Route: 048
     Dates: start: 20131205, end: 20131205
  7. SAXIZON [Concomitant]
     Dosage: 100MG PER DAY
     Route: 048
     Dates: start: 20131121, end: 20131121
  8. SAXIZON [Concomitant]
     Dosage: 100MG PER DAY
     Route: 048
     Dates: start: 20131128, end: 20131128
  9. SAXIZON [Concomitant]
     Dosage: 100MG PER DAY
     Route: 048
     Dates: start: 20131205, end: 20131205
  10. ACETAMINOPHEN [Concomitant]
     Dosage: 400MG PER DAY
     Route: 048
     Dates: start: 20131121, end: 20131121
  11. ACETAMINOPHEN [Concomitant]
     Dosage: 400MG PER DAY
     Route: 048
     Dates: start: 20131128, end: 20131128
  12. VOLTAREN SR [Concomitant]
     Dosage: 37.5MG TWICE PER DAY
     Route: 048
     Dates: start: 20131128, end: 20131128
  13. VOLTAREN SR [Concomitant]
     Dosage: 37.5MG TWICE PER DAY
     Route: 048
     Dates: start: 20131205, end: 20131205

REACTIONS (6)
  - Urinary retention [Recovered/Resolved]
  - Urinary retention [Recovered/Resolved]
  - Hot flush [Recovered/Resolved]
  - Feeling abnormal [Recovered/Resolved]
  - Pyrexia [Recovered/Resolved]
  - Pyrexia [Recovered/Resolved]
